FAERS Safety Report 9209214 (Version 1)
Quarter: 2013Q2

REPORT INFORMATION
  Report Type: Report from Study
  Country: CA (occurrence: CA)
  Receive Date: 20130404
  Receipt Date: 20130404
  Transmission Date: 20140414
  Serious: Yes (Other)
  Sender: FDA-Public Use
  Company Number: CA-UCBSA-078866

PATIENT
  Sex: Female
  Weight: 58.96 kg

DRUGS (14)
  1. CIMZIA [Suspect]
     Indication: RHEUMATOID ARTHRITIS
     Route: 058
     Dates: start: 20110328
  2. CIMZIA [Suspect]
     Indication: RHEUMATOID ARTHRITIS
     Route: 058
     Dates: start: 201102, end: 20110228
  3. ARAVA [Concomitant]
     Indication: RHEUMATOID ARTHRITIS
     Dosage: TOTAL DAILY DOSE: 20 MG
     Route: 048
     Dates: start: 200811
  4. AZITHROMYCIN [Concomitant]
     Indication: TUBERCULOSIS
     Dosage: TOTAL DAILY DOSE: 250 MG
     Route: 048
     Dates: start: 201012, end: 20110201
  5. PLAQUANIL [Concomitant]
     Indication: RHEUMATOID ARTHRITIS
     Dosage: TOTAL DAILY DOSE: 400 MG
     Route: 048
     Dates: start: 1996
  6. ETHAMBUTOL [Concomitant]
     Indication: TUBERCULOSIS
     Dosage: TOTAL DAILY DOSE: 800 MG
     Route: 048
     Dates: start: 201012
  7. MYCOBUTIN [Concomitant]
     Indication: TUBERCULOSIS
     Dosage: TOTAL DAILY DOSE: 300 MG
     Route: 048
     Dates: start: 201012
  8. HYDROXYCHLOROQUINE [Concomitant]
     Indication: RHEUMATOID ARTHRITIS
     Dosage: UNKNOWN DOSE
  9. HYDROXYCHLOROQUINE [Concomitant]
     Indication: RHEUMATOID ARTHRITIS
     Dosage: UNKNOWN DOSE
     Dates: start: 200811, end: 201102
  10. HYDROXYCHLOROQUINE [Concomitant]
     Indication: RHEUMATOID ARTHRITIS
     Route: 048
  11. PREDNISONE [Concomitant]
     Dosage: AROUND 2 MG DAILY
  12. PREDNISONE [Concomitant]
     Dosage: INCREASED DOSE, TOTAL DAILY DOSE: 5 MG
  13. DIOVAN [Concomitant]
     Route: 048
  14. ELTROXIN [Concomitant]
     Route: 048

REACTIONS (8)
  - Retinal detachment [Not Recovered/Not Resolved]
  - Mycobacterium avium complex infection [Unknown]
  - Chest pain [Unknown]
  - Malaise [Unknown]
  - Nasopharyngitis [Unknown]
  - Oropharyngeal pain [Unknown]
  - Fatigue [Unknown]
  - Stress [Unknown]
